FAERS Safety Report 21519527 (Version 1)
Quarter: 2022Q4

REPORT INFORMATION
  Report Type: Spontaneous
  Country: US (occurrence: None)
  Receive Date: 20221027
  Receipt Date: 20221027
  Transmission Date: 20230113
  Serious: Yes (Life-Threatening)
  Sender: FDA-Public Use
  Company Number: None

PATIENT
  Age: 78 Year
  Sex: Male
  Weight: 93 kg

DRUGS (1)
  1. FOSINOPRIL [Suspect]
     Active Substance: FOSINOPRIL
     Indication: Hypertension
     Dosage: 20 MG EVERY DAY PO?
     Route: 048
     Dates: start: 20210422, end: 20221018

REACTIONS (1)
  - Angioedema [None]

NARRATIVE: CASE EVENT DATE: 20221018
